FAERS Safety Report 18160561 (Version 1)
Quarter: 2020Q3

REPORT INFORMATION
  Report Type: Spontaneous
  Country: US (occurrence: US)
  Receive Date: 20200818
  Receipt Date: 20200818
  Transmission Date: 20201103
  Serious: Yes (Other)
  Sender: FDA-Public Use
  Company Number: US-CADILA HEALTHCARE LIMITED-US-ZYDUS-054547

PATIENT

DRUGS (6)
  1. LEVETIRACETAM. [Suspect]
     Active Substance: LEVETIRACETAM
     Indication: HOLMES TREMOR
     Dosage: UNK
     Route: 065
  2. PROPRANOLOL [Suspect]
     Active Substance: PROPRANOLOL HYDROCHLORIDE
     Indication: HOLMES TREMOR
     Dosage: UNK
     Route: 065
  3. LEVODOPA/CARBIDOPA [Suspect]
     Active Substance: CARBIDOPA\LEVODOPA
     Indication: HOLMES TREMOR
     Dosage: UNK
     Route: 065
  4. GABAPENTIN. [Concomitant]
     Active Substance: GABAPENTIN
     Indication: HOLMES TREMOR
     Dosage: UNK
  5. GABAPENTIN. [Concomitant]
     Active Substance: GABAPENTIN
     Dosage: UNK
  6. CANNABIDIOL [Concomitant]
     Active Substance: CANNABIDIOL
     Indication: HOLMES TREMOR
     Dosage: UNK

REACTIONS (6)
  - Drug ineffective for unapproved indication [Unknown]
  - Dystonia [Unknown]
  - Condition aggravated [Unknown]
  - Pain in jaw [Unknown]
  - Intention tremor [Unknown]
  - Resting tremor [Unknown]
